FAERS Safety Report 5721025-X (Version None)
Quarter: 2008Q2

REPORT INFORMATION
  Report Type: 
  Country: None (occurrence: None)
  Receive Date: 20080429
  Receipt Date: 20080421
  Transmission Date: 20081010
  Serious: Yes (Other)
  Sender: FDA-Public Use
  Company Number: FR-AVENTIS-200811523FR

PATIENT
  Age: 38 Year
  Sex: Female

DRUGS (2)
  1. RIFINAH [Suspect]
     Route: 048
     Dates: start: 20080401
  2. RIFINAH [Suspect]
     Route: 048
     Dates: start: 20080401

REACTIONS (1)
  - FACIAL PALSY [None]
